FAERS Safety Report 4705567-1 (Version None)
Quarter: 2005Q2

REPORT INFORMATION
  Report Type: 
  Country: None (occurrence: None)
  Receive Date: 20050629
  Receipt Date: 20050125
  Transmission Date: 20051028
  Serious: Yes (Death, Other)
  Sender: FDA-Public Use
  Company Number: 200510702GDDC

PATIENT
  Age: 66 Year
  Sex: Female
  Weight: 60 kg

DRUGS (7)
  1. HEPARIN SODIUM [Suspect]
     Indication: MYOCARDIAL INFARCTION
     Dosage: ONCE IVB
     Route: 040
     Dates: start: 20050124, end: 20050124
  2. HEPARIN [Suspect]
     Indication: MYOCARDIAL INFARCTION
     Dosage: ONCE IVB
     Route: 040
     Dates: start: 20050124, end: 20050124
  3. HEPARIN [Suspect]
     Indication: MYOCARDIAL INFARCTION
     Dosage: ONCE SC
     Route: 058
     Dates: start: 20050124
  4. HEPARIN [Suspect]
     Indication: MYOCARDIAL INFARCTION
     Dosage: CONT IVF
     Route: 042
     Dates: start: 20050124
  5. ASPIRIN [Suspect]
     Indication: MYOCARDIAL INFARCTION
     Dosage: 300 MG /DAY PO
     Route: 048
     Dates: start: 20050124, end: 20050124
  6. STREPTASE [Suspect]
     Indication: MYOCARDIAL INFARCTION
     Dosage: 1.5 MIU/DAY IV
     Route: 042
     Dates: start: 20050124, end: 20050124
  7. DOBUTREX [Concomitant]

REACTIONS (4)
  - ATRIOVENTRICULAR BLOCK [None]
  - CARDIAC FAILURE [None]
  - ELECTROMECHANICAL DISSOCIATION [None]
  - MYOCARDIAL RUPTURE [None]
